FAERS Safety Report 6945953-2 (Version None)
Quarter: 2010Q3

REPORT INFORMATION
  Report Type: 
  Country: None (occurrence: None)
  Receive Date: 20100827
  Receipt Date: 20100827
  Transmission Date: 20110219
  Serious: Yes (Life-Threatening, Hospitalization)
  Sender: FDA-Public Use
  Company Number: US-ROXANE LABORATORIES, INC.-2010-RO-01140RO

PATIENT
  Sex: Female

DRUGS (6)
  1. METHADONE [Suspect]
     Indication: BACK PAIN
     Dosage: 30 MG
     Route: 048
     Dates: start: 19920101
  2. BENZODIAZEPINE [Suspect]
  3. BLINDED IMP [Suspect]
     Dates: start: 20100126, end: 20100530
  4. TIZANIDINE HCL [Concomitant]
     Indication: BACK PAIN
     Dosage: 12 MG
     Route: 048
     Dates: start: 19920101
  5. MAGNESIUM [Concomitant]
     Indication: SUPPLEMENTATION THERAPY
     Dosage: 250 MG
     Route: 048
     Dates: start: 20080101
  6. PULMICORT [Concomitant]
     Indication: CHRONIC OBSTRUCTIVE PULMONARY DISEASE
     Dosage: 720 MCG
     Route: 055
     Dates: start: 20100109

REACTIONS (3)
  - MULTIPLE DRUG OVERDOSE [None]
  - PULMONARY EMBOLISM [None]
  - RESPIRATORY FAILURE [None]
